FAERS Safety Report 4485042-2 (Version None)
Quarter: 2004Q3

REPORT INFORMATION
  Report Type: 
  Country: None (occurrence: None)
  Receive Date: 20040921
  Receipt Date: 20031002
  Transmission Date: 20050211
  Serious: Yes (Death, Hospitalization)
  Sender: FDA-Public Use
  Company Number: 163-20785-03070082

PATIENT
  Age: 69 Year
  Sex: Female

DRUGS (6)
  1. THALOMID [Suspect]
     Indication: MULTIPLE MYELOMA
     Dosage: 400 MG, ORAL
     Route: 048
     Dates: start: 20030310, end: 20030514
  2. MELPHALAN (MELPHALAN) [Suspect]
     Indication: MULTIPLE MYELOMA
     Dosage: 370 MG, UNKNOWN, INTRAVENOUS
     Route: 042
     Dates: start: 20030615
  3. VINCRISTINE [Suspect]
     Indication: MULTIPLE MYELOMA
     Dosage: 0.5 MG INTRAVENOUS
     Route: 042
     Dates: start: 20030310, end: 20030313
  4. ADRIAMYCIN PFS [Suspect]
     Indication: MULTIPLE MYELOMA
     Dosage: 18 MG, INTRAVENOUS
     Route: 042
     Dates: start: 20030310, end: 20030313
  5. DEXAMETHASONE [Suspect]
     Indication: MULTIPLE MYELOMA
     Dosage: 40 MG, ORAL
     Route: 048
     Dates: start: 20030310, end: 20030313
  6. DIGOXIN [Concomitant]

REACTIONS (24)
  - ABDOMINAL DISTENSION [None]
  - ANAEMIA [None]
  - ATRIAL FIBRILLATION [None]
  - CLOSTRIDIUM COLITIS [None]
  - COMA [None]
  - CYANOSIS [None]
  - DEATH [None]
  - DIARRHOEA [None]
  - DYSPNOEA [None]
  - FEBRILE INFECTION [None]
  - FEBRILE NEUTROPENIA [None]
  - GASTROOESOPHAGEAL REFLUX DISEASE [None]
  - HAEMORRHAGE [None]
  - HEART RATE DECREASED [None]
  - HYPOXIA [None]
  - MULTI-ORGAN FAILURE [None]
  - NAUSEA [None]
  - PLATELET COUNT DECREASED [None]
  - PNEUMONIA [None]
  - PNEUMONIA LEGIONELLA [None]
  - PYREXIA [None]
  - RASH [None]
  - THROMBOCYTOPENIA [None]
  - VOMITING [None]
